FAERS Safety Report 23669521 (Version 1)
Quarter: 2024Q1

REPORT INFORMATION
  Report Type: Spontaneous
  Country: US (occurrence: None)
  Receive Date: 20240325
  Receipt Date: 20240325
  Transmission Date: 20240410
  Serious: Yes (Other)
  Sender: FDA-Public Use
  Company Number: None

PATIENT
  Sex: Male

DRUGS (8)
  1. PEGASYS [Suspect]
     Active Substance: PEGINTERFERON ALFA-2A
     Indication: Cutaneous T-cell lymphoma
     Dosage: FREQ: INJECT 0.5 ML UNDER THE SKIN (SUBCUTANEOUS INJECTION) EVERY WEEK EACH VIAL IS SINGLE USE. ?
     Route: 058
     Dates: start: 20211026
  2. ACITRETIN [Concomitant]
     Active Substance: ACITRETIN
  3. AMLOD/BENAZP [Concomitant]
  4. ASPIRIN [Concomitant]
     Active Substance: ASPIRIN
  5. COENZYME Q10 [Concomitant]
     Active Substance: DIETARY SUPPLEMENT\UBIDECARENONE
  6. HYDROCHLOROTHIAZIDE [Concomitant]
     Active Substance: HYDROCHLOROTHIAZIDE
  7. MYTESI [Concomitant]
     Active Substance: CROFELEMER
  8. ZETIA [Concomitant]
     Active Substance: EZETIMIBE

REACTIONS (2)
  - Surgery [None]
  - Therapy interrupted [None]
